FAERS Safety Report 9843437 (Version 1)
Quarter: 2013Q4

REPORT INFORMATION
  Report Type: Spontaneous
  Country: US (occurrence: None)
  Receive Date: 20131219
  Receipt Date: 20131219
  Transmission Date: 20140711
  Serious: Yes (Other)
  Sender: FDA-Public Use
  Company Number: 163-20785-13081055

PATIENT
  Sex: Male
  Weight: 63.5 kg

DRUGS (6)
  1. THALOMID (THALIDOMIDE) (100 MILLIGRAM, CAPSULES) [Suspect]
     Indication: PLASMA CELL MYELOMA
     Dosage: 1 IN 1 D
     Route: 048
     Dates: start: 200903
  2. ACYCLOVIR [Concomitant]
  3. DEXAMETHASONE [Concomitant]
  4. MULTIVITAMINS [Concomitant]
  5. ZANTAC [Concomitant]
  6. ZOMETA [Concomitant]

REACTIONS (2)
  - Deep vein thrombosis [None]
  - Drug ineffective [None]
